FAERS Safety Report 9952365 (Version 1)
Quarter: 2014Q1

REPORT INFORMATION
  Report Type: Spontaneous
  Country: US (occurrence: US)
  Receive Date: 20140304
  Receipt Date: 20140304
  Transmission Date: 20141002
  Serious: No
  Sender: FDA-Public Use
  Company Number: US-009507513-1402USA009003

PATIENT
  Sex: Male

DRUGS (3)
  1. ASMANEX TWISTHALER [Suspect]
     Indication: ASTHMA
     Dosage: UNK UNK, PRN
     Route: 055
     Dates: start: 2004
  2. SEREVENT DISKUS [Concomitant]
     Dosage: UNK
  3. COMBIVENT [Concomitant]
     Dosage: UNK

REACTIONS (4)
  - Respiratory tract congestion [Recovering/Resolving]
  - Drug dose omission [Unknown]
  - Accidental exposure to product [Unknown]
  - Product container issue [Unknown]
